FAERS Safety Report 15474369 (Version 1)
Quarter: 2018Q4

REPORT INFORMATION
  Report Type: Spontaneous
  Country: JP (occurrence: JP)
  Receive Date: 20181008
  Receipt Date: 20181008
  Transmission Date: 20190205
  Serious: Yes (Other)
  Sender: FDA-Public Use
  Company Number: JP-JNJFOC-20181000821

PATIENT

DRUGS (2)
  1. XARELTO [Suspect]
     Active Substance: RIVAROXABAN
     Indication: PRODUCT USED FOR UNKNOWN INDICATION
     Dosage: XARELTO 10 MG
     Route: 048
     Dates: start: 201809
  2. XARELTO [Suspect]
     Active Substance: RIVAROXABAN
     Indication: PRODUCT USED FOR UNKNOWN INDICATION
     Dosage: XARELTO 15 MG
     Route: 048
     Dates: end: 201809

REACTIONS (2)
  - Epistaxis [Unknown]
  - Renal impairment [Unknown]

NARRATIVE: CASE EVENT DATE: 201809
